FAERS Safety Report 23388784 (Version 1)
Quarter: 2024Q1

REPORT INFORMATION
  Report Type: Spontaneous
  Country: US (occurrence: None)
  Receive Date: 20240110
  Receipt Date: 20240110
  Transmission Date: 20240410
  Serious: Yes (Hospitalization)
  Sender: FDA-Public Use
  Company Number: None

PATIENT
  Age: 78 Year
  Sex: Female

DRUGS (19)
  1. TOBRAMYCIN [Suspect]
     Active Substance: TOBRAMYCIN
     Indication: Pseudomonas infection
  2. ALBUTEROL AER HFA [Concomitant]
  3. ALBUTEROL NEB 0.083% [Concomitant]
  4. ATIVAN TAB 1MG [Concomitant]
  5. BREI EKKUOTA 200-25 MCG INH [Concomitant]
  6. CALCIUM 600 TAB+D [Concomitant]
  7. CALTRTE 600 CHW +D PLUS [Concomitant]
  8. CARDIZEM CDC AP 120MG/24 [Concomitant]
  9. COLACE CAP 100MG [Concomitant]
  10. CRESTOR TAB 5MG [Concomitant]
  11. FIORICET TAB [Concomitant]
  12. HYDROXYCHLOROQUINE [Concomitant]
     Active Substance: HYDROXYCHLOROQUINE
  13. OXYCODONE TAB 5MG [Concomitant]
  14. PEPCID TAB20MG [Concomitant]
  15. PREDNISONE TAB 10MG [Concomitant]
  16. PROLIA INJ 60MG/ML [Concomitant]
  17. TRAZODONE TAB 100MG [Concomitant]
  18. TRELEGY AER 100MCG [Concomitant]
  19. ZOLOFT TAB 50MG [Concomitant]

REACTIONS (1)
  - Pseudomonas infection [None]

NARRATIVE: CASE EVENT DATE: 20240101
